FAERS Safety Report 4957430-9 (Version None)
Quarter: 2006Q1

REPORT INFORMATION
  Report Type: 
  Country: None (occurrence: None)
  Receive Date: 20060327
  Receipt Date: 20060317
  Transmission Date: 20060701
  Serious: Yes (Hospitalization, Other)
  Sender: FDA-Public Use
  Company Number: 2005-11-0639

PATIENT
  Age: 68 Year
  Sex: Female
  Weight: 58 kg

DRUGS (5)
  1. PEG-INTRON [Suspect]
     Indication: HEPATITIS C
     Dosage: 80 MCG QW SUBCUTANEOUS
     Route: 058
     Dates: start: 20050617, end: 20051028
  2. REBETOL [Suspect]
     Indication: HEPATITIS C
     Dosage: 600-200* MG ORAL
     Route: 048
     Dates: start: 20050617, end: 20050630
  3. REBETOL [Suspect]
     Indication: HEPATITIS C
     Dosage: 600-200* MG ORAL
     Route: 048
     Dates: start: 20050701, end: 20050714
  4. REBETOL [Suspect]
     Indication: HEPATITIS C
     Dosage: 600-200* MG ORAL
     Route: 048
     Dates: start: 20050715, end: 20051028
  5. MENATETRENONE CAPSULES [Concomitant]

REACTIONS (3)
  - ANAEMIA [None]
  - INTRACRANIAL ANEURYSM [None]
  - SUBARACHNOID HAEMORRHAGE [None]
